FAERS Safety Report 9463611 (Version 1)
Quarter: 2013Q3

REPORT INFORMATION
  Report Type: Spontaneous
  Country: US (occurrence: US)
  Receive Date: 20130819
  Receipt Date: 20130819
  Transmission Date: 20140515
  Serious: Yes (Other)
  Sender: FDA-Public Use
  Company Number: US-ASTRAZENECA-2013SE63273

PATIENT
  Age: 80 Year
  Sex: Female

DRUGS (4)
  1. BRILINTA [Suspect]
     Dosage: NOT SPECIFIED UNK
     Route: 048
  2. SIMVASTATIN [Concomitant]
     Dosage: NOT SPECIFIED UNK
  3. ASPIRIN [Concomitant]
     Dosage: NOT SPECIFIED UNK
  4. NIACIN [Concomitant]
     Dosage: NOT SPECIFIED UNK

REACTIONS (1)
  - Platelet count decreased [Recovered/Resolved]
